FAERS Safety Report 13238032 (Version 1)
Quarter: 2017Q1

REPORT INFORMATION
  Report Type: Spontaneous
  Country: CA (occurrence: CA)
  Receive Date: 20170216
  Receipt Date: 20170216
  Transmission Date: 20170428
  Serious: Yes (Life-Threatening)
  Sender: FDA-Public Use
  Company Number: CA-TEVA-739254ACC

PATIENT
  Age: 47 Year
  Sex: Female

DRUGS (1)
  1. NOVO-OLANZAPINE [Suspect]
     Active Substance: OLANZAPINE
     Indication: PSYCHOTIC DISORDER
     Dosage: 5 MILLIGRAM DAILY;
     Route: 048

REACTIONS (2)
  - Lip swelling [Recovering/Resolving]
  - Rash generalised [Recovering/Resolving]
